FAERS Safety Report 4559157-4 (Version None)
Quarter: 2005Q1

REPORT INFORMATION
  Report Type: 
  Country: None (occurrence: None)
  Receive Date: 20050119
  Receipt Date: 20050106
  Transmission Date: 20050727
  Serious: Yes (Hospitalization, Congenital Anomaly)
  Sender: FDA-Public Use
  Company Number: 2004112588

PATIENT
  Sex: Female
  Weight: 2.98 kg

DRUGS (2)
  1. VIRACEPT [Suspect]
     Indication: PROPHYLAXIS AGAINST HIV INFECTION
     Dosage: 2500 MG (1250 MG, 2 IN 1 D), ORAL
     Route: 048
     Dates: start: 20030825, end: 20030924
  2. LAMIVUDINE AND ZIDOVUDINE [Suspect]
     Indication: PROPHYLAXIS AGAINST HIV INFECTION
     Dosage: 900 MG (450 MG, 2 IN 1 D), ORAL
     Route: 048
     Dates: start: 20030825, end: 20030924

REACTIONS (5)
  - ANAL ATRESIA [None]
  - CATHETER SITE INFLAMMATION [None]
  - CONGENITAL ANOMALY [None]
  - DRUG EXPOSURE DURING PREGNANCY [None]
  - PERINEAL FISTULA [None]
